FAERS Safety Report 23465914 (Version 7)
Quarter: 2024Q3

REPORT INFORMATION
  Report Type: Spontaneous
  Country: US (occurrence: US)
  Receive Date: 20240201
  Receipt Date: 20240724
  Transmission Date: 20241016
  Serious: Yes (Other)
  Sender: CSL BEHRING
  Company Number: US-BEH-2024168005

PATIENT
  Age: 14 Year
  Sex: Male

DRUGS (12)
  1. IDELVION [Suspect]
     Active Substance: COAGULATION FACTOR IX RECOMBINANT HUMAN
     Indication: Factor IX deficiency
     Dosage: 2500 INTERNATIONAL UNIT, QW
     Route: 042
     Dates: start: 201811
  2. IDELVION [Suspect]
     Active Substance: COAGULATION FACTOR IX RECOMBINANT HUMAN
     Indication: Factor IX deficiency
     Dosage: 2500 INTERNATIONAL UNIT, QW
     Route: 042
     Dates: start: 201811
  3. IDELVION [Suspect]
     Active Substance: COAGULATION FACTOR IX RECOMBINANT HUMAN
     Indication: Haemorrhage
     Dosage: 2500 INTERNATIONAL UNIT, PRN
     Route: 042
     Dates: start: 201811
  4. IDELVION [Suspect]
     Active Substance: COAGULATION FACTOR IX RECOMBINANT HUMAN
     Indication: Haemorrhage
     Dosage: 2500 INTERNATIONAL UNIT, PRN
     Route: 042
     Dates: start: 201811
  5. IDELVION [Suspect]
     Active Substance: COAGULATION FACTOR IX RECOMBINANT HUMAN
     Indication: Fall
     Dosage: 2712 IU, QW
     Route: 042
     Dates: start: 201811
  6. IDELVION [Suspect]
     Active Substance: COAGULATION FACTOR IX RECOMBINANT HUMAN
     Indication: Fall
     Dosage: 2712 IU, QW
     Route: 042
     Dates: start: 201811
  7. IDELVION [Suspect]
     Active Substance: COAGULATION FACTOR IX RECOMBINANT HUMAN
     Indication: Soft tissue injury
     Dosage: 2712 IU, PRN
     Route: 042
     Dates: start: 201811
  8. IDELVION [Suspect]
     Active Substance: COAGULATION FACTOR IX RECOMBINANT HUMAN
     Indication: Soft tissue injury
     Dosage: 2712 IU, PRN
     Route: 042
     Dates: start: 201811
  9. IDELVION [Suspect]
     Active Substance: COAGULATION FACTOR IX RECOMBINANT HUMAN
     Indication: Haemorrhage
     Dosage: 2 DF
     Route: 065
     Dates: start: 20240327
  10. IDELVION [Suspect]
     Active Substance: COAGULATION FACTOR IX RECOMBINANT HUMAN
     Indication: Haemorrhage
     Dosage: 2 DF
     Route: 065
     Dates: start: 20240327
  11. IDELVION [Suspect]
     Active Substance: COAGULATION FACTOR IX RECOMBINANT HUMAN
     Dosage: 2850 IU, PRN
     Route: 042
     Dates: start: 201811
  12. IDELVION [Suspect]
     Active Substance: COAGULATION FACTOR IX RECOMBINANT HUMAN
     Dosage: 2850 IU, PRN
     Route: 042
     Dates: start: 201811

REACTIONS (12)
  - Haemarthrosis [Unknown]
  - Haemarthrosis [Unknown]
  - Genital injury [Unknown]
  - Haematuria [Unknown]
  - Soft tissue haemorrhage [Recovered/Resolved]
  - Fall [Unknown]
  - Soft tissue injury [Unknown]
  - Haemorrhage [Unknown]
  - Soft tissue haemorrhage [Unknown]
  - Haemorrhage [Unknown]
  - Animal bite [Unknown]
  - Soft tissue haemorrhage [Recovered/Resolved]

NARRATIVE: CASE EVENT DATE: 20240106
